FAERS Safety Report 11242989 (Version 1)
Quarter: 2015Q3

REPORT INFORMATION
  Report Type: Spontaneous
  Country: US (occurrence: None)
  Receive Date: 20150702
  Receipt Date: 20150702
  Transmission Date: 20151125
  Serious: Yes (Other)
  Sender: FDA-Public Use
  Company Number: ADR-2015-01134

PATIENT
  Age: 44 Year
  Sex: Female

DRUGS (1)
  1. LIORESAL [Suspect]
     Active Substance: BACLOFEN
     Indication: MUSCLE SPASTICITY
     Dosage: 953.4 MCG/DAY

REACTIONS (14)
  - Myotonia [None]
  - Hand deformity [None]
  - Neuropathy peripheral [None]
  - Ulnar tunnel syndrome [None]
  - Demyelinating polyneuropathy [None]
  - Paraesthesia [None]
  - Implant site infection [None]
  - Implant site erosion [None]
  - Hypoaesthesia [None]
  - Implant site erythema [None]
  - Weight decreased [None]
  - Cubital tunnel syndrome [None]
  - Muscle atrophy [None]
  - Intra-abdominal haematoma [None]
